FAERS Safety Report 4621117-2 (Version None)
Quarter: 2005Q1

REPORT INFORMATION
  Report Type: 
  Country: None (occurrence: None)
  Receive Date: 20050325
  Receipt Date: 20050312
  Transmission Date: 20050727
  Serious: Yes (Life-Threatening)
  Sender: FDA-Public Use
  Company Number: 2005044476

PATIENT
  Age: 56 Year
  Sex: Male

DRUGS (1)
  1. ZELDOX (IM) (ZIPRASIDONE) [Suspect]
     Indication: ILL-DEFINED DISORDER
     Dosage: (20), INTRAMUSCULAR
     Route: 030
     Dates: start: 20040701

REACTIONS (1)
  - CARDIO-RESPIRATORY ARREST [None]
